FAERS Safety Report 9349846 (Version 1)
Quarter: 2013Q2

REPORT INFORMATION
  Report Type: Report from Study
  Country: GB (occurrence: GB)
  Receive Date: 20130614
  Receipt Date: 20130614
  Transmission Date: 20140414
  Serious: Yes (Hospitalization)
  Sender: FDA-Public Use
  Company Number: GB-ROCHE-1236160

PATIENT
  Age: 55 Year
  Sex: Male
  Weight: 59.8 kg

DRUGS (5)
  1. BEVACIZUMAB [Suspect]
     Indication: COLON CANCER
     Route: 042
     Dates: start: 20130326
  2. MORPHINE SULFATE [Concomitant]
     Route: 065
  3. ORAMORPH [Concomitant]
  4. PREGABALIN [Concomitant]
     Route: 065
  5. OMEPRAZOLE [Concomitant]
     Route: 065

REACTIONS (3)
  - Diarrhoea [Not Recovered/Not Resolved]
  - Hypotension [Unknown]
  - Malaise [Unknown]
